FAERS Safety Report 7765899-X (Version None)
Quarter: 2011Q3

REPORT INFORMATION
  Report Type: 
  Country: None (occurrence: None)
  Receive Date: 20110921
  Receipt Date: 20110830
  Transmission Date: 20111222
  Serious: No
  Sender: FDA-Public Use
  Company Number: US-BAYER-2011-081832

PATIENT
  Age: 19 Year
  Sex: Female
  Weight: 91 kg

DRUGS (1)
  1. ALEVE (CAPLET) [Suspect]
     Indication: SELF INJURIOUS BEHAVIOUR
     Dosage: 8800 MG, BOTTLE COUNT 50S
     Route: 048
     Dates: start: 20110830, end: 20110830

REACTIONS (1)
  - NO ADVERSE EVENT [None]
